FAERS Safety Report 7962732-8 (Version None)
Quarter: 2011Q4

REPORT INFORMATION
  Report Type: 
  Country: None (occurrence: None)
  Receive Date: 20111207
  Receipt Date: 20111129
  Transmission Date: 20120403
  Serious: Yes (Hospitalization)
  Sender: FDA-Public Use
  Company Number: PHHY2011JP103529

PATIENT
  Age: 76 Year
  Sex: Female

DRUGS (6)
  1. ROZEREM [Suspect]
     Route: 048
  2. HOLEVID [Suspect]
     Route: 048
  3. SLOW-K [Suspect]
     Dosage: UNK UKN, UNK
     Route: 048
  4. PROMAZINE HYDROCHLORIDE [Suspect]
     Route: 048
  5. RISPERIDONE [Suspect]
     Route: 048
  6. AMLODIPINE [Suspect]
     Route: 048

REACTIONS (1)
  - LIVER DISORDER [None]
